FAERS Safety Report 21560968 (Version 1)
Quarter: 2022Q4

REPORT INFORMATION
  Report Type: Spontaneous
  Country: US (occurrence: US)
  Receive Date: 20221107
  Receipt Date: 20221107
  Transmission Date: 20230113
  Serious: Yes (Life-Threatening, Hospitalization, Other)
  Sender: FDA-Public Use
  Company Number: US-JUBILANT CADISTA PHARMACEUTICALS-2022JUB00420

PATIENT
  Age: 67 Year
  Sex: Female

DRUGS (7)
  1. PREDNISONE [Suspect]
     Active Substance: PREDNISONE
     Indication: Back pain
     Dosage: 1500 MG, 6 CYCLE, SIX COURSES OF PREDNISONE, 50 MG DAILY FOR 5 DAYS OVER A 3-MONTH PERIOD
  2. DEXAMETHASONE [Suspect]
     Active Substance: DEXAMETHASONE
     Dosage: 10 MG, 12 HOUR
  3. DEXAMETHASONE [Suspect]
     Active Substance: DEXAMETHASONE
     Dosage: 6 MG, 1 TOTAL, 6 MG ONCE DURING POD 1?2
  4. DEXAMETHASONE [Suspect]
     Active Substance: DEXAMETHASONE
     Dosage: 8 MG, 2X/DAY
  5. HYDROCORTISONE [Suspect]
     Active Substance: HYDROCORTISONE
     Dosage: 50 MG, EVERY 6 HOURS
  6. HYDROCORTISONE [Suspect]
     Active Substance: HYDROCORTISONE
     Dosage: 25 MG, EVERY 6 HOUR
  7. HYDROCORTISONE [Suspect]
     Active Substance: HYDROCORTISONE
     Dosage: 100 MG, 1 TOTAL

REACTIONS (8)
  - Systemic candida [Recovered/Resolved]
  - Respiratory failure [Recovered/Resolved]
  - Herpes simplex oesophagitis [Recovered/Resolved]
  - Septic shock [Recovered/Resolved]
  - Acute kidney injury [Recovered/Resolved]
  - Candida infection [Recovered/Resolved]
  - Herpes simplex viraemia [Recovered/Resolved]
  - Acute respiratory distress syndrome [Recovered/Resolved]
